FAERS Safety Report 5731660-0 (Version None)
Quarter: 2008Q2

REPORT INFORMATION
  Report Type: 
  Country: None (occurrence: None)
  Receive Date: 20080508
  Receipt Date: 20080429
  Transmission Date: 20081010
  Serious: Yes (Other)
  Sender: FDA-Public Use
  Company Number: PHHY2008GB06903

PATIENT

DRUGS (1)
  1. RIVASTIGMINE TARTRATE [Suspect]
     Dosage: 9.5 MG/24 HRS
     Route: 062

REACTIONS (1)
  - FREEZING PHENOMENON [None]
